FAERS Safety Report 6852620-2 (Version None)
Quarter: 2010Q3

REPORT INFORMATION
  Report Type: 
  Country: None (occurrence: None)
  Receive Date: 20100717
  Receipt Date: 20080111
  Transmission Date: 20110219
  Serious: No
  Sender: FDA-Public Use
  Company Number: US-PFIZER INC-2007096314

PATIENT
  Sex: Female
  Weight: 65 kg

DRUGS (4)
  1. CHANTIX [Suspect]
     Indication: SMOKING CESSATION THERAPY
     Route: 048
     Dates: start: 20071001
  2. PREVACID [Concomitant]
     Indication: OESOPHAGEAL DISORDER
     Route: 048
  3. ACETYLSALICYLIC ACID [Concomitant]
     Route: 048
  4. CALCIUM [Concomitant]
     Route: 048

REACTIONS (1)
  - RENAL PAIN [None]
